FAERS Safety Report 7338162-9 (Version None)
Quarter: 2011Q1

REPORT INFORMATION
  Report Type: 
  Country: None (occurrence: None)
  Receive Date: 20110308
  Receipt Date: 20110223
  Transmission Date: 20110831
  Serious: Yes (Other)
  Sender: FDA-Public Use
  Company Number: FR-ELI_LILLY_AND_COMPANY-FR201103000870

PATIENT
  Sex: Male

DRUGS (8)
  1. CYMBALTA [Suspect]
     Dosage: 60 MG, DAILY (1/D)
     Route: 048
     Dates: start: 20090801, end: 20090801
  2. HYDROXYZINE [Concomitant]
     Dosage: 25 MG, 4/D
     Route: 048
     Dates: end: 20100902
  3. ALPRAZOLAM [Concomitant]
     Dosage: 0.5 MG, DAILY (1/D)
     Route: 048
     Dates: end: 20090801
  4. ALPRAZOLAM [Concomitant]
     Dosage: 0.5 MG, 3/D
     Dates: start: 20090801, end: 20090824
  5. DAFALGAN [Concomitant]
     Dosage: 1000 MG, 3/D
  6. NORSET [Concomitant]
     Dosage: UNK, UNKNOWN
  7. FORLAX [Concomitant]
     Dosage: UNK, 2/D
     Route: 048
  8. ALPRAZOLAM [Concomitant]
     Dosage: UNK, UNKNOWN
     Dates: start: 20090824

REACTIONS (6)
  - BRADYPHRENIA [None]
  - PSYCHOMOTOR SKILLS IMPAIRED [None]
  - RENAL FAILURE [None]
  - AGITATION [None]
  - FALL [None]
  - CONFUSIONAL STATE [None]
